FAERS Safety Report 4900104-0 (Version None)
Quarter: 2006Q1

REPORT INFORMATION
  Report Type: 
  Country: None (occurrence: None)
  Receive Date: 20060203
  Receipt Date: 20060125
  Transmission Date: 20060701
  Serious: Yes (Other)
  Sender: FDA-Public Use
  Company Number: US-AVENTIS-200610910US

PATIENT
  Age: 30 Year
  Sex: Male

DRUGS (1)
  1. KETEK [Suspect]
     Dosage: DOSE: UNK
     Dates: start: 20051228, end: 20060101

REACTIONS (4)
  - RETINAL OEDEMA [None]
  - RETINOPATHY [None]
  - VISION BLURRED [None]
  - VISUAL ACUITY REDUCED [None]
